FAERS Safety Report 9500078 (Version 2)
Quarter: 2013Q3

REPORT INFORMATION
  Report Type: Report from Study
  Country: AU (occurrence: AU)
  Receive Date: 20130905
  Receipt Date: 20130916
  Transmission Date: 20140515
  Serious: Yes (Other)
  Sender: FDA-Public Use
  Company Number: PHHY2013AU095586

PATIENT
  Age: 47 Year
  Sex: Female

DRUGS (5)
  1. SIMULECT [Suspect]
     Indication: IMMUNOSUPPRESSION
     Dosage: UNK
  2. METHYLPREDNISOLONE [Concomitant]
     Indication: IMMUNOSUPPRESSION
     Dosage: UNK
  3. TACROLIMUS [Concomitant]
     Indication: IMMUNOSUPPRESSION
     Dosage: UNK
  4. MYCOPHENOLATE [Concomitant]
     Indication: IMMUNOSUPPRESSION
     Dosage: UNK
  5. PREDNISOLONE [Concomitant]
     Indication: IMMUNOSUPPRESSION
     Dosage: UNK

REACTIONS (9)
  - Renal impairment [Unknown]
  - Hydronephrosis [Unknown]
  - Urinary tract infection [Unknown]
  - Neutropenic sepsis [Unknown]
  - Nephropathy toxic [Unknown]
  - Pleural effusion [Unknown]
  - Respiratory failure [Unknown]
  - Pulmonary oedema [Unknown]
  - Pneumonia staphylococcal [Unknown]
